FAERS Safety Report 21338787 (Version 1)
Quarter: 2022Q3

REPORT INFORMATION
  Report Type: Report from Study
  Country: KR (occurrence: None)
  Receive Date: 20220915
  Receipt Date: 20220915
  Transmission Date: 20221027
  Serious: Yes (Death, Life-Threatening, Hospitalization, Other)
  Sender: FDA-Public Use
  Company Number: 2019SE39965

PATIENT
  Age: 24772 Day
  Sex: Male

DRUGS (83)
  1. CARBOPLATIN [Suspect]
     Active Substance: CARBOPLATIN
     Indication: Non-small cell lung cancer stage IV
     Dosage: 570 MG
     Route: 042
     Dates: start: 20190227, end: 20190227
  2. CARBOPLATIN [Suspect]
     Active Substance: CARBOPLATIN
     Indication: Non-small cell lung cancer stage IV
     Dosage: 477 MG
     Route: 042
     Dates: start: 20190320, end: 20190320
  3. CARBOPLATIN [Suspect]
     Active Substance: CARBOPLATIN
     Indication: Non-small cell lung cancer stage IV
     Dosage: 477 MG
     Route: 042
     Dates: start: 20190410, end: 20190410
  4. CARBOPLATIN [Suspect]
     Active Substance: CARBOPLATIN
     Indication: Non-small cell lung cancer stage IV
     Dosage: 387 MG
     Route: 042
     Dates: start: 20190503, end: 20190503
  5. DURVALUMAB [Suspect]
     Active Substance: DURVALUMAB
     Indication: Non-small cell lung cancer stage IV
     Route: 042
     Dates: start: 20190227, end: 20190227
  6. DURVALUMAB [Suspect]
     Active Substance: DURVALUMAB
     Indication: Non-small cell lung cancer stage IV
     Route: 042
     Dates: start: 20190320, end: 20190320
  7. DURVALUMAB [Suspect]
     Active Substance: DURVALUMAB
     Indication: Non-small cell lung cancer stage IV
     Route: 042
     Dates: start: 20190410, end: 20190410
  8. DURVALUMAB [Suspect]
     Active Substance: DURVALUMAB
     Indication: Non-small cell lung cancer stage IV
     Route: 042
     Dates: start: 20190503, end: 20190503
  9. DURVALUMAB [Suspect]
     Active Substance: DURVALUMAB
     Indication: Non-small cell lung cancer stage IV
     Route: 042
     Dates: start: 20190527, end: 20190527
  10. DURVALUMAB [Suspect]
     Active Substance: DURVALUMAB
     Indication: Non-small cell lung cancer stage IV
     Route: 042
     Dates: start: 20190624, end: 20190624
  11. OLECLUMAB [Suspect]
     Active Substance: OLECLUMAB
     Indication: Non-small cell lung cancer stage IV
     Route: 042
     Dates: start: 20190227, end: 20190227
  12. OLECLUMAB [Suspect]
     Active Substance: OLECLUMAB
     Indication: Non-small cell lung cancer stage IV
     Route: 042
     Dates: start: 20190320, end: 20190320
  13. OLECLUMAB [Suspect]
     Active Substance: OLECLUMAB
     Indication: Non-small cell lung cancer stage IV
     Route: 042
     Dates: start: 20190410, end: 20190410
  14. OLECLUMAB [Suspect]
     Active Substance: OLECLUMAB
     Indication: Non-small cell lung cancer stage IV
     Route: 042
     Dates: start: 20190503, end: 20190503
  15. OLECLUMAB [Suspect]
     Active Substance: OLECLUMAB
     Indication: Non-small cell lung cancer stage IV
     Route: 042
     Dates: start: 20190527, end: 20190527
  16. OLECLUMAB [Suspect]
     Active Substance: OLECLUMAB
     Indication: Non-small cell lung cancer stage IV
     Route: 042
     Dates: start: 20190624, end: 20190624
  17. PEMETREXED [Suspect]
     Active Substance: PEMETREXED
     Indication: Non-small cell lung cancer stage IV
     Dosage: 865 MG
     Route: 042
     Dates: start: 20190227, end: 20190227
  18. PEMETREXED [Suspect]
     Active Substance: PEMETREXED
     Indication: Non-small cell lung cancer stage IV
     Dosage: 865 MG
     Route: 042
     Dates: start: 20190320, end: 20190320
  19. PEMETREXED [Suspect]
     Active Substance: PEMETREXED
     Indication: Non-small cell lung cancer stage IV
     Dosage: 865 MG
     Route: 042
     Dates: start: 20190410, end: 20190410
  20. PEMETREXED [Suspect]
     Active Substance: PEMETREXED
     Indication: Non-small cell lung cancer stage IV
     Dosage: 865 MG
     Route: 042
     Dates: start: 20190503, end: 20190503
  21. PEMETREXED [Suspect]
     Active Substance: PEMETREXED
     Indication: Non-small cell lung cancer stage IV
     Dosage: 865 MG
     Route: 042
     Dates: start: 20190527, end: 20190527
  22. PEMETREXED [Suspect]
     Active Substance: PEMETREXED
     Indication: Non-small cell lung cancer stage IV
     Dosage: 865 MG
     Route: 042
     Dates: start: 20190624, end: 20190624
  23. PITAVASTATIN [Concomitant]
     Active Substance: PITAVASTATIN
     Indication: Hyperlipidaemia
     Route: 048
     Dates: start: 2014, end: 20190715
  24. PITAVASTATIN [Concomitant]
     Active Substance: PITAVASTATIN
     Indication: Hyperlipidaemia
     Route: 048
     Dates: start: 20190716, end: 20190808
  25. IRBESARTAN/HYDROCHLOROTHIAZID E [Concomitant]
     Indication: Hypertension
     Route: 048
     Dates: start: 2014, end: 20190306
  26. SODIUM CHLORIDE [Concomitant]
     Active Substance: SODIUM CHLORIDE
     Indication: Hyponatraemia
     Route: 042
     Dates: start: 20190306, end: 20190306
  27. SODIUM CHLORIDE [Concomitant]
     Active Substance: SODIUM CHLORIDE
     Indication: Hyponatraemia
     Dates: start: 20190306, end: 20190306
  28. METOCLOPRAMIDE [Concomitant]
     Active Substance: METOCLOPRAMIDE
     Indication: Prophylactic chemotherapy
     Route: 048
     Dates: start: 20190320, end: 20190527
  29. METOCLOPRAMIDE [Concomitant]
     Active Substance: METOCLOPRAMIDE
     Indication: Prophylaxis of nausea and vomiting
     Route: 048
     Dates: start: 20190320, end: 20190527
  30. METOCLOPRAMIDE [Concomitant]
     Active Substance: METOCLOPRAMIDE
     Indication: Prophylactic chemotherapy
     Route: 048
     Dates: start: 20190805
  31. METOCLOPRAMIDE [Concomitant]
     Active Substance: METOCLOPRAMIDE
     Indication: Prophylaxis of nausea and vomiting
     Route: 048
     Dates: start: 20190805
  32. ONDANSETRON [Concomitant]
     Active Substance: ONDANSETRON
     Indication: Prophylactic chemotherapy
     Route: 060
     Dates: start: 20190320, end: 20190527
  33. LACTICARE [Concomitant]
     Indication: Rash
     Route: 061
     Dates: start: 20190327, end: 20190527
  34. TAMSULOSIN [Concomitant]
     Active Substance: TAMSULOSIN
     Indication: Benign prostatic hyperplasia
     Route: 048
     Dates: start: 20190525, end: 20190715
  35. FINASTERIDE [Concomitant]
     Active Substance: FINASTERIDE
     Indication: Benign prostatic hyperplasia
     Route: 048
     Dates: start: 20190525, end: 20190715
  36. PROPIVERINE [Concomitant]
     Active Substance: PROPIVERINE
     Indication: Benign prostatic hyperplasia
     Route: 048
     Dates: start: 20190525, end: 20190715
  37. ACECLOFENAC [Concomitant]
     Active Substance: ACECLOFENAC
     Indication: Pain in extremity
     Route: 048
     Dates: start: 20190610, end: 20190715
  38. FENTANYL CITRATE [Concomitant]
     Active Substance: FENTANYL CITRATE
     Indication: Pain prophylaxis
     Route: 042
     Dates: start: 20190715, end: 20190715
  39. PROPACETAMOL [Concomitant]
     Active Substance: PROPACETAMOL
     Indication: Pain prophylaxis
     Dosage: 1.0G INTERMITTENT
     Route: 042
     Dates: start: 20190715
  40. FENTANYL TRANSDERMAL SYSTEM [Concomitant]
     Active Substance: FENTANYL
     Indication: Pain prophylaxis
     Route: 062
     Dates: start: 20190715
  41. CEFAZOLIN [Concomitant]
     Active Substance: CEFAZOLIN
     Indication: Infection prophylaxis
     Route: 042
     Dates: start: 20190715, end: 20190715
  42. TRANEXAMIC ACID [Concomitant]
     Active Substance: TRANEXAMIC ACID
     Indication: Prophylaxis
     Route: 048
     Dates: start: 20190716, end: 20190809
  43. TRANEXAMIC ACID [Concomitant]
     Active Substance: TRANEXAMIC ACID
     Indication: Prophylaxis
     Route: 042
     Dates: start: 20190810, end: 20190811
  44. FOLIC ACID [Concomitant]
     Active Substance: FOLIC ACID
     Indication: Prophylaxis
     Route: 048
     Dates: start: 20190716, end: 20190809
  45. FOLIC ACID [Concomitant]
     Active Substance: FOLIC ACID
     Indication: Prophylactic chemotherapy
     Route: 048
     Dates: start: 20190716, end: 20190809
  46. FOLIC ACID [Concomitant]
     Active Substance: FOLIC ACID
     Indication: Prophylaxis
     Route: 048
     Dates: start: 20190218, end: 20190715
  47. FOLIC ACID [Concomitant]
     Active Substance: FOLIC ACID
     Indication: Prophylactic chemotherapy
     Route: 048
     Dates: start: 20190218, end: 20190715
  48. ALBUTEROL [Concomitant]
     Active Substance: ALBUTEROL
     Indication: Prophylaxis
     Route: 055
     Dates: start: 20190716, end: 20190808
  49. MICRONIZED BUDESONIDE [Concomitant]
     Indication: Prophylaxis
     Route: 055
     Dates: start: 20190718, end: 20190806
  50. IPRATROPIUM [Concomitant]
     Active Substance: IPRATROPIUM
     Indication: Prophylaxis
     Route: 055
     Dates: start: 20190718, end: 20190806
  51. ACETYLCYSTEINE [Concomitant]
     Active Substance: ACETYLCYSTEINE
     Indication: Prophylaxis
     Route: 055
     Dates: start: 20190729, end: 20190806
  52. ACETYLCYSTEINE [Concomitant]
     Active Substance: ACETYLCYSTEINE
     Indication: Prophylaxis
     Route: 048
     Dates: start: 20190729, end: 20190809
  53. AMBROXOL [Concomitant]
     Active Substance: AMBROXOL
     Indication: Prophylaxis
     Route: 048
     Dates: start: 20190716, end: 20190717
  54. AMBROXOL [Concomitant]
     Active Substance: AMBROXOL
     Indication: Prophylaxis
     Route: 048
     Dates: start: 20190728, end: 20190728
  55. AMBROXOL [Concomitant]
     Active Substance: AMBROXOL
     Indication: Prophylaxis
     Route: 042
     Dates: start: 20190729
  56. MEGACE [Concomitant]
     Active Substance: MEGESTROL ACETATE
     Indication: Prophylaxis
     Route: 048
     Dates: start: 20190727, end: 20190807
  57. NAPROXEN [Concomitant]
     Active Substance: NAPROXEN
     Indication: Pain prophylaxis
     Route: 048
     Dates: start: 20190726, end: 20190726
  58. NALOXONE HYDROCHLORIDE\OXYCODONE HYDROCHLORIDE [Concomitant]
     Active Substance: NALOXONE HYDROCHLORIDE\OXYCODONE HYDROCHLORIDE
     Indication: Pain prophylaxis
     Route: 048
     Dates: start: 20190716, end: 20190809
  59. PANTOPRAZOLE [Concomitant]
     Active Substance: PANTOPRAZOLE
     Indication: Gastrointestinal disorder prophylaxis
     Route: 042
     Dates: start: 20190729, end: 20190806
  60. PANTOPRAZOLE [Concomitant]
     Active Substance: PANTOPRAZOLE
     Indication: Gastrointestinal disorder prophylaxis
     Route: 048
     Dates: start: 20190807, end: 20190809
  61. PANTOPRAZOLE [Concomitant]
     Active Substance: PANTOPRAZOLE
     Indication: Gastrointestinal disorder prophylaxis
     Route: 042
     Dates: start: 20190810, end: 20190811
  62. FAMOTIDINE [Concomitant]
     Active Substance: FAMOTIDINE
     Indication: Gastrointestinal disorder prophylaxis
     Route: 048
     Dates: start: 20190716, end: 20190717
  63. FAMOTIDINE [Concomitant]
     Active Substance: FAMOTIDINE
     Indication: Prophylactic chemotherapy
     Route: 048
     Dates: start: 20190716, end: 20190717
  64. FAMOTIDINE [Concomitant]
     Active Substance: FAMOTIDINE
     Indication: Gastrointestinal disorder prophylaxis
     Route: 048
     Dates: start: 20190218, end: 20190715
  65. FAMOTIDINE [Concomitant]
     Active Substance: FAMOTIDINE
     Indication: Prophylactic chemotherapy
     Route: 048
     Dates: start: 20190218, end: 20190715
  66. ERDOSTEINE [Concomitant]
     Active Substance: ERDOSTEINE
     Indication: Prophylaxis
     Route: 048
     Dates: start: 20190726, end: 20190809
  67. UMECLIDINIUM BROMIDE\VILANTEROL TRIFENATATE [Concomitant]
     Active Substance: UMECLIDINIUM BROMIDE\VILANTEROL TRIFENATATE
     Indication: Prophylaxis
     Route: 055
     Dates: start: 20190716, end: 20190717
  68. UMECLIDINIUM BROMIDE\VILANTEROL TRIFENATATE [Concomitant]
     Active Substance: UMECLIDINIUM BROMIDE\VILANTEROL TRIFENATATE
     Indication: Prophylaxis
     Route: 055
     Dates: start: 20190807, end: 20190807
  69. LYRICA [Concomitant]
     Active Substance: PREGABALIN
     Indication: Prophylaxis
     Route: 048
     Dates: start: 20190718, end: 20190720
  70. LYRICA [Concomitant]
     Active Substance: PREGABALIN
     Indication: Prophylaxis
     Route: 048
     Dates: start: 20190721, end: 20190730
  71. LYRICA [Concomitant]
     Active Substance: PREGABALIN
     Indication: Prophylaxis
     Route: 048
     Dates: start: 20190731, end: 20190809
  72. LYRICA [Concomitant]
     Active Substance: PREGABALIN
     Indication: Prophylaxis
     Route: 048
     Dates: start: 20190810, end: 20190810
  73. PIROXICAM [Concomitant]
     Active Substance: PIROXICAM
     Indication: Pain prophylaxis
     Route: 062
     Dates: start: 20190721
  74. DUPHALAC EASY SYRUP [Concomitant]
     Indication: Constipation prophylaxis
     Route: 051
     Dates: start: 20190721, end: 20190721
  75. TAZOPERAN [Concomitant]
     Indication: Infection prophylaxis
     Route: 042
     Dates: start: 20190721, end: 20190727
  76. TAZOPERAN [Concomitant]
     Indication: Infection prophylaxis
     Route: 042
     Dates: start: 20190809
  77. LEVOFLOXACIN [Concomitant]
     Active Substance: LEVOFLOXACIN
     Indication: Infection prophylaxis
     Route: 042
     Dates: start: 20190721, end: 20190727
  78. METHYLPREDNISOLONE [Concomitant]
     Active Substance: METHYLPREDNISOLONE
     Indication: Infection prophylaxis
     Route: 042
     Dates: start: 20190721, end: 20190723
  79. MORPHINE [Concomitant]
     Active Substance: MORPHINE
     Indication: Pain prophylaxis
     Dosage: 10.0MG INTERMITTENT
     Route: 042
     Dates: start: 20190809
  80. HALOPERIDOL [Concomitant]
     Active Substance: HALOPERIDOL
     Indication: Prophylaxis
     Dosage: 5.0MG INTERMITTENT
     Route: 030
     Dates: start: 20190811
  81. VITAMIN B12 [Concomitant]
     Active Substance: CYANOCOBALAMIN
     Indication: Prophylactic chemotherapy
     Dosage: 1.0MG INTERMITTENT
     Route: 030
     Dates: start: 20190218, end: 20190715
  82. DEXAMETHASONE [Concomitant]
     Active Substance: DEXAMETHASONE
     Indication: Prophylactic chemotherapy
     Route: 048
     Dates: start: 20190226, end: 20190715
  83. ALOXI [Concomitant]
     Active Substance: PALONOSETRON HYDROCHLORIDE
     Indication: Prophylactic chemotherapy
     Dosage: 0.25MG INTERMITTENT
     Route: 042
     Dates: start: 20190227, end: 20190715

REACTIONS (2)
  - Hyponatraemia [Recovered/Resolved]
  - Non-small cell lung cancer [Fatal]

NARRATIVE: CASE EVENT DATE: 20190306
